FAERS Safety Report 5355027-2 (Version None)
Quarter: 2007Q2

REPORT INFORMATION
  Report Type: 
  Country: None (occurrence: None)
  Receive Date: 20070514
  Receipt Date: 20060707
  Transmission Date: 20071010
  Serious: Yes (Other)
  Sender: FDA-Public Use
  Company Number: 2006-02821

PATIENT
  Sex: Female

DRUGS (20)
  1. ESTRADIOL [Suspect]
     Indication: HORMONE REPLACEMENT THERAPY
     Dosage: ORAL
     Route: 048
  2. MEDROXYPROGESTERONE [Suspect]
     Indication: HORMONE REPLACEMENT THERAPY
  3. PREMARIN [Suspect]
     Indication: HORMONE REPLACEMENT THERAPY
  4. CYCRIN [Suspect]
     Indication: HORMONE REPLACEMENT THERAPY
  5. AYGESTIN [Suspect]
     Indication: HORMONE REPLACEMENT THERAPY
  6. PREMPHASE (PREMARIN;CYCRIN 14/14) [Suspect]
     Indication: HORMONE REPLACEMENT THERAPY
  7. PREMPRO [Suspect]
     Indication: HORMONE REPLACEMENT THERAPY
  8. PROVERA [Suspect]
     Indication: HORMONE REPLACEMENT THERAPY
  9. FEMHRT [Suspect]
     Indication: HORMONE REPLACEMENT THERAPY
  10. VAGIFEM [Suspect]
     Indication: HORMONE REPLACEMENT THERAPY
  11. ACTIVELLA [Suspect]
     Indication: HORMONE REPLACEMENT THERAPY
  12. CENESTIN [Suspect]
     Indication: HORMONE REPLACEMENT THERAPY
  13. ESTRADERM [Suspect]
     Indication: HORMONE REPLACEMENT THERAPY
  14. VIVELLE [Suspect]
     Indication: HORMONE REPLACEMENT THERAPY
  15. ESTRACE [Suspect]
     Indication: HORMONE REPLACEMENT THERAPY
  16. ESTRATEST [Suspect]
     Indication: HORMONE REPLACEMENT THERAPY
  17. ESTRATAB [Suspect]
     Indication: HORMONE REPLACEMENT THERAPY
  18. CLIMARA [Suspect]
     Indication: HORMONE REPLACEMENT THERAPY
  19. ORTHO TRI-CYCLEN(ETHINYLESTRADIOL) [Suspect]
     Indication: HORMONE REPLACEMENT THERAPY
  20. PREFEST [Suspect]
     Indication: HORMONE REPLACEMENT THERAPY

REACTIONS (1)
  - BREAST CANCER FEMALE [None]
